FAERS Safety Report 5918130-1 (Version None)
Quarter: 2008Q4

REPORT INFORMATION
  Report Type: 
  Country: None (occurrence: None)
  Receive Date: 20081014
  Receipt Date: 20081014
  Transmission Date: 20090506
  Serious: Yes (Life-Threatening, Hospitalization)
  Sender: FDA-Public Use
  Company Number: JP-B.I. PHARMACEUTICALS,INC./RIDGEFIELD-2008-BP-15711NB

PATIENT
  Sex: Male
  Weight: 52.4 kg

DRUGS (3)
  1. MICARDIS [Suspect]
     Indication: HYPERTENSION
     Dosage: 40MG
     Route: 048
     Dates: start: 20060630
  2. LIVALO [Concomitant]
     Indication: HYPERLIPIDAEMIA
     Dosage: 2MG
     Route: 048
     Dates: start: 20070209
  3. AMLODIN [Concomitant]
     Indication: HYPERTENSION
     Dosage: 2.5MG
     Route: 048
     Dates: start: 20051216

REACTIONS (1)
  - ANGINA PECTORIS [None]
